FAERS Safety Report 8964228 (Version 1)
Quarter: 2012Q4

REPORT INFORMATION
  Report Type: 
  Country: US (occurrence: US)
  Receive Date: 20121214
  Receipt Date: 20121214
  Transmission Date: 20130627
  Serious: Yes (Hospitalization)
  Sender: FDA-Public Use
  Company Number: US-BAYER-2012-130356

PATIENT
  Age: 48 Year
  Sex: Female

DRUGS (5)
  1. YASMIN [Suspect]
     Indication: MENOPAUSAL SYMPTOMS
  2. SARAFEM [Concomitant]
     Indication: DEPRESSION
     Dosage: 20 mg, UNK
     Route: 048
     Dates: start: 20020808, end: 20030326
  3. CLONAZEPAM [Concomitant]
     Indication: DEPRESSION
     Dosage: 0.5 mg, UNK
     Route: 048
     Dates: start: 20030327, end: 20041219
  4. LEXAPRO [Concomitant]
     Indication: MENOPAUSAL DEPRESSION
  5. KLONOPIN [Concomitant]
     Indication: MENOPAUSAL DEPRESSION

REACTIONS (2)
  - Deep vein thrombosis [None]
  - Off label use [None]
